FAERS Safety Report 6800765-5 (Version None)
Quarter: 2010Q2

REPORT INFORMATION
  Report Type: 
  Country: None (occurrence: None)
  Receive Date: 20100629
  Receipt Date: 20100625
  Transmission Date: 20101027
  Serious: Yes (Other)
  Sender: FDA-Public Use
  Company Number: CA-ABBOTT-10P-028-0640385-00

PATIENT
  Sex: Female
  Weight: 52.21 kg

DRUGS (1)
  1. HUMIRA [Suspect]
     Indication: RHEUMATOID ARTHRITIS
     Route: 058
     Dates: start: 20060503

REACTIONS (6)
  - ARTHRALGIA [None]
  - CONTUSION [None]
  - FALL [None]
  - FATIGUE [None]
  - MEDICAL DEVICE PAIN [None]
  - UPPER LIMB FRACTURE [None]
